FAERS Safety Report 19827337 (Version 1)
Quarter: 2021Q3

REPORT INFORMATION
  Report Type: Spontaneous
  Country: US (occurrence: US)
  Receive Date: 20210913
  Receipt Date: 20210913
  Transmission Date: 20211014
  Serious: Yes (Hospitalization)
  Sender: FDA-Public Use
  Company Number: None

PATIENT
  Age: 54 Year
  Sex: Female

DRUGS (2)
  1. TAKHZYRO [Concomitant]
     Active Substance: LANADELUMAB-FLYO
  2. ICATIBANT [Suspect]
     Active Substance: ICATIBANT ACETATE
     Route: 058
     Dates: start: 2014

REACTIONS (6)
  - Cerebrovascular accident [None]
  - Loss of consciousness [None]
  - Sensory loss [None]
  - Stress [None]
  - Seizure [None]
  - Injection site pain [None]

NARRATIVE: CASE EVENT DATE: 20210813
